FAERS Safety Report 10024533 (Version 1)
Quarter: 2014Q1

REPORT INFORMATION
  Report Type: Report from Study
  Country: US (occurrence: US)
  Receive Date: 20140320
  Receipt Date: 20140320
  Transmission Date: 20141002
  Serious: Yes (Other)
  Sender: FDA-Public Use
  Company Number: PHEH2014US005464

PATIENT
  Sex: Female

DRUGS (10)
  1. GILENYA [Suspect]
     Indication: MULTIPLE SCLEROSIS
     Dosage: 0.5 MG, QD
     Route: 048
     Dates: start: 20110816
  2. VIT D3 [Concomitant]
     Dosage: 1000 U, BID
     Route: 048
  3. DETROL LA [Concomitant]
     Dosage: 1 DF, QHS
     Route: 048
  4. VIT B12 [Concomitant]
     Dosage: 1 DF, QD
     Route: 048
  5. AMITRIPTYLINE [Concomitant]
     Dosage: 25 MG, QD
     Route: 048
  6. FLUOXETINE [Concomitant]
     Dosage: 60 MG, UNK
  7. FLUOXETINE [Concomitant]
     Dosage: 40 MG, QD
     Route: 048
  8. NORTRIPTYLINE [Concomitant]
     Dosage: 10 MG, QD
     Route: 048
  9. ATENOLOL [Concomitant]
     Dosage: 25 MG, UNK
  10. CLONAXYL [Concomitant]
     Dosage: 25 MG, TID
     Route: 048

REACTIONS (1)
  - Benign breast neoplasm [Not Recovered/Not Resolved]
